FAERS Safety Report 6407100-5 (Version None)
Quarter: 2009Q4

REPORT INFORMATION
  Report Type: 
  Country: None (occurrence: None)
  Receive Date: 20091014
  Receipt Date: 20090929
  Transmission Date: 20100525
  Serious: Yes (Hospitalization)
  Sender: FDA-Public Use
  Company Number: 20090311

PATIENT
  Age: 28 Year
  Sex: Female

DRUGS (9)
  1. VENOFER [Suspect]
     Indication: ANAEMIA OF PREGNANCY
     Dosage: 300 MG INTRAVENOUS
     Route: 042
     Dates: start: 20090606, end: 20090608
  2. AUGMENTIN [Concomitant]
  3. OXCYTOCIN (SYNTOCINON) [Concomitant]
  4. UNSPECIFIED INTRAVENOUS FLUID [Concomitant]
  5. DINOPROSTONE [Concomitant]
  6. MISOPROSTOL [Concomitant]
  7. UNSPECIFIED PERIDURAL ANESTHETIC [Concomitant]
  8. UNSPECIFIED ANALGESIC [Concomitant]
  9. UNSPECIFIED ANTISPASMODIC [Concomitant]

REACTIONS (2)
  - INJECTION SITE THROMBOSIS [None]
  - THROMBOPHLEBITIS SUPERFICIAL [None]
